FAERS Safety Report 4851245-8 (Version None)
Quarter: 2005Q4

REPORT INFORMATION
  Report Type: 
  Country: None (occurrence: None)
  Receive Date: 20051208
  Receipt Date: 20050823
  Transmission Date: 20060501
  Serious: Yes (Other)
  Sender: FDA-Public Use
  Company Number: 701497

PATIENT
  Age: 75 Year
  Sex: Male
  Weight: 99.7913 kg

DRUGS (8)
  1. AMEVIVE [Suspect]
     Indication: PSORIASIS
     Dosage: 15 MG; QW; IM
     Route: 030
     Dates: start: 20031001, end: 20040108
  2. METHOTREXATE [Concomitant]
  3. CLOBETASOL PROPIONATE [Concomitant]
  4. PROTOPIC [Concomitant]
  5. ULTRAVATE [Concomitant]
  6. DOVONEX [Concomitant]
  7. TAZORAC GEL [Concomitant]
  8. SORIATANE [Concomitant]

REACTIONS (7)
  - ASTHENIA [None]
  - CD4 LYMPHOCYTES DECREASED [None]
  - CHILLS [None]
  - IMMUNE SYSTEM DISORDER [None]
  - LYMPHADENOPATHY MEDIASTINAL [None]
  - MYCOSIS FUNGOIDES [None]
  - NECROSIS [None]
